FAERS Safety Report 23185141 (Version 6)
Quarter: 2024Q3

REPORT INFORMATION
  Report Type: Report from Study
  Country: US (occurrence: US)
  Receive Date: 20231115
  Receipt Date: 20240822
  Transmission Date: 20241016
  Serious: Yes (Other)
  Sender: TAKEDA
  Company Number: US-TAKEDA-2022TUS043959

PATIENT
  Age: 6 Year
  Sex: Female
  Weight: 19 kg

DRUGS (28)
  1. HUMAN IMMUNOGLOBULIN G [Suspect]
     Active Substance: HUMAN IMMUNOGLOBULIN G
     Indication: Immunodeficiency common variable
     Dosage: 10 GRAM, Q4WEEKS
     Route: 042
     Dates: start: 20220630
  2. HUMAN IMMUNOGLOBULIN G [Suspect]
     Active Substance: HUMAN IMMUNOGLOBULIN G
     Indication: Immunodeficiency common variable
     Dosage: 10 GRAM, Q4WEEKS
     Route: 042
     Dates: start: 20220630
  3. HUMAN IMMUNOGLOBULIN G [Suspect]
     Active Substance: HUMAN IMMUNOGLOBULIN G
     Dosage: 10 GRAM, Q4WEEKS
     Route: 042
     Dates: start: 20220701
  4. HUMAN IMMUNOGLOBULIN G [Suspect]
     Active Substance: HUMAN IMMUNOGLOBULIN G
     Dosage: 10 GRAM, Q4WEEKS
     Route: 042
     Dates: start: 20220701
  5. HUMAN IMMUNOGLOBULIN G [Suspect]
     Active Substance: HUMAN IMMUNOGLOBULIN G
     Dosage: 10 GRAM, Q4WEEKS
     Route: 042
     Dates: start: 20220827
  6. HUMAN IMMUNOGLOBULIN G [Suspect]
     Active Substance: HUMAN IMMUNOGLOBULIN G
     Dosage: 10 GRAM, Q4WEEKS
     Route: 042
     Dates: start: 20220827
  7. HUMAN IMMUNOGLOBULIN G [Suspect]
     Active Substance: HUMAN IMMUNOGLOBULIN G
     Dosage: 10 GRAM, Q4WEEKS
     Route: 042
     Dates: start: 20230728
  8. HUMAN IMMUNOGLOBULIN G [Suspect]
     Active Substance: HUMAN IMMUNOGLOBULIN G
     Dosage: 10 GRAM, Q4WEEKS
     Route: 042
     Dates: start: 20230728
  9. CUVITRU [Suspect]
     Active Substance: HUMAN IMMUNOGLOBULIN G
     Indication: Immunodeficiency common variable
     Dosage: 3 GRAM, 1/WEEK
     Route: 058
     Dates: start: 20230824
  10. CUVITRU [Suspect]
     Active Substance: HUMAN IMMUNOGLOBULIN G
     Dosage: 4 GRAM, 1/WEEK
     Route: 058
  11. CUVITRU [Suspect]
     Active Substance: HUMAN IMMUNOGLOBULIN G
     Dosage: 4 GRAM, 1/WEEK
     Route: 058
  12. XEMBIFY [Suspect]
     Active Substance: HUMAN IMMUNOGLOBULIN G
     Indication: Product used for unknown indication
     Dosage: UNK
     Route: 065
  13. EPINEPHRINE [Concomitant]
     Active Substance: EPINEPHRINE
     Dosage: UNK
     Route: 065
  14. ACETAMINOPHEN [Concomitant]
     Active Substance: ACETAMINOPHEN
     Dosage: UNK
     Route: 065
  15. PREDNISOLONE [Concomitant]
     Active Substance: PREDNISOLONE
     Dosage: UNK
     Route: 065
  16. ALBUTEROL SULFATE [Concomitant]
     Active Substance: ALBUTEROL SULFATE
     Dosage: UNK
     Route: 065
  17. LIDOCAINE [Concomitant]
     Active Substance: LIDOCAINE
     Dosage: UNK
     Route: 065
  18. CETIRIZINE HYDROCHLORIDE [Concomitant]
     Active Substance: CETIRIZINE HYDROCHLORIDE
     Dosage: UNK
     Route: 065
  19. DIPHENHYDRAMINE [Concomitant]
     Active Substance: DIPHENHYDRAMINE
     Dosage: UNK
     Route: 065
  20. PROAIR HFA [Concomitant]
     Active Substance: ALBUTEROL SULFATE
     Dosage: UNK
     Route: 065
  21. LORATADINE [Concomitant]
     Active Substance: LORATADINE
     Dosage: UNK
     Route: 065
  22. BENEFIBER [Concomitant]
     Active Substance: STARCH, WHEAT
     Dosage: UNK
     Route: 065
  23. ONDANSETRON HYDROCHLORIDE [Concomitant]
     Active Substance: ONDANSETRON HYDROCHLORIDE
     Dosage: UNK
     Route: 065
  24. SODIUM CHLORIDE [Concomitant]
     Active Substance: SODIUM CHLORIDE
     Dosage: UNK
     Route: 065
  25. SODIUM CHLORIDE [Concomitant]
     Active Substance: SODIUM CHLORIDE
     Dosage: UNK
     Route: 065
  26. OMEPRAZOLE [Concomitant]
     Active Substance: OMEPRAZOLE
     Dosage: UNK
     Route: 065
  27. SENNA [Concomitant]
     Active Substance: SENNA LEAF\SENNOSIDES\SENNOSIDES A AND B
     Dosage: UNK
     Route: 065
  28. ADVIL JUNIOR STRENGTH [Concomitant]
     Dosage: UNK
     Route: 065

REACTIONS (33)
  - Pneumonia [Unknown]
  - Throat irritation [Unknown]
  - Streptococcal infection [Recovering/Resolving]
  - Seasonal allergy [Unknown]
  - COVID-19 [Unknown]
  - Illness [Unknown]
  - Irritability [Unknown]
  - Infectious mononucleosis [Unknown]
  - Bowel movement irregularity [Unknown]
  - Therapeutic product effect decreased [Unknown]
  - Injection site pustule [Unknown]
  - Limb injury [Unknown]
  - Infection [Unknown]
  - Product dose omission issue [Unknown]
  - Infusion site mass [Unknown]
  - Palpitations [Unknown]
  - Rhinorrhoea [Unknown]
  - Influenza [Unknown]
  - Infusion site pain [Recovered/Resolved]
  - Infusion site erythema [Unknown]
  - Infusion site pruritus [Recovered/Resolved]
  - Lethargy [Unknown]
  - Decreased appetite [Recovered/Resolved]
  - Vomiting [Unknown]
  - Pruritus [Unknown]
  - Abdominal pain upper [Not Recovered/Not Resolved]
  - Tachycardia [Unknown]
  - Abdominal pain [Not Recovered/Not Resolved]
  - Headache [Recovering/Resolving]
  - Fatigue [Unknown]
  - Nausea [Not Recovered/Not Resolved]
  - Pyrexia [Unknown]
  - Dizziness [Unknown]

NARRATIVE: CASE EVENT DATE: 20231022
